FAERS Safety Report 9975062 (Version 1)
Quarter: 2014Q1

REPORT INFORMATION
  Report Type: Report from Study
  Country: US (occurrence: US)
  Receive Date: 20140306
  Receipt Date: 20140306
  Transmission Date: 20141002
  Serious: No
  Sender: FDA-Public Use
  Company Number: US-ABBVIE-13P-163-1161068-00

PATIENT
  Age: 45 Year
  Sex: Female

DRUGS (5)
  1. HUMIRA [Suspect]
     Indication: CROHN^S DISEASE
     Dates: start: 20130311
  2. PREVACID [Concomitant]
     Indication: GASTRITIS
     Dosage: 30MG DAILY
  3. PREVACID [Concomitant]
     Indication: DYSPEPSIA
  4. NASONEX [Concomitant]
     Indication: HYPERSENSITIVITY
     Dosage: DAILY
  5. MULTIVITAMIN [Concomitant]
     Indication: PRODUCT USED FOR UNKNOWN INDICATION
     Dosage: DAILY

REACTIONS (4)
  - Oropharyngeal pain [Recovering/Resolving]
  - Paranasal sinus hypersecretion [Recovering/Resolving]
  - Nasopharyngitis [Recovering/Resolving]
  - Nasopharyngitis [Recovering/Resolving]
